FAERS Safety Report 26153405 (Version 1)
Quarter: 2025Q4

REPORT INFORMATION
  Report Type: Report from Study
  Country: US (occurrence: US)
  Receive Date: 20251214
  Receipt Date: 20251214
  Transmission Date: 20260117
  Serious: Yes (Other)
  Sender: JAZZ
  Company Number: US-JAZZ PHARMACEUTICALS-2025-US-028525

PATIENT
  Sex: Female

DRUGS (3)
  1. XYREM [Suspect]
     Active Substance: SODIUM OXYBATE
     Indication: Product used for unknown indication
  2. IPRATROPIUM [Concomitant]
     Active Substance: IPRATROPIUM
     Indication: Product used for unknown indication
     Dosage: 0000
  3. WOMEN^S MULTIVITAMIN + MINERAL [Concomitant]
     Indication: Product used for unknown indication
     Dosage: 0000

REACTIONS (1)
  - Mast cell activation syndrome [Unknown]

NARRATIVE: CASE EVENT DATE: 20200101
